FAERS Safety Report 9531141 (Version 1)
Quarter: 2013Q3

REPORT INFORMATION
  Report Type: Spontaneous
  Country: US (occurrence: None)
  Receive Date: 20130916
  Receipt Date: 20130916
  Transmission Date: 20140515
  Serious: Yes (Disabling, Other)
  Sender: FDA-Public Use
  Company Number: None

PATIENT
  Age: 25 Year
  Sex: Female
  Weight: 76.66 kg

DRUGS (1)
  1. IUD MIRENA BAYER [Suspect]
     Indication: CONTRACEPTION
     Dosage: IUD
     Route: 067
     Dates: start: 20110207, end: 20130409

REACTIONS (11)
  - Ovarian cyst [None]
  - Ovulation pain [None]
  - Endometriosis [None]
  - Weight increased [None]
  - Acne [None]
  - Depression [None]
  - Anxiety [None]
  - Infection [None]
  - Pregnancy with contraceptive device [None]
  - Exposure during pregnancy [None]
  - Abortion spontaneous [None]
